FAERS Safety Report 25454382 (Version 1)
Quarter: 2025Q2

REPORT INFORMATION
  Report Type: Spontaneous
  Country: US (occurrence: US)
  Receive Date: 20250619
  Receipt Date: 20250619
  Transmission Date: 20250717
  Serious: Yes (Other)
  Sender: MERCK SHARP & DOHME LLC
  Company Number: US-009507513-2296430

PATIENT
  Sex: Male
  Weight: 104.33 kg

DRUGS (16)
  1. WINREVAIR [Suspect]
     Active Substance: SOTATERCEPT-CSRK
     Indication: Pulmonary arterial hypertension
     Dosage: 0.7 MG/KG, Q3W
     Route: 058
     Dates: start: 20241211
  2. WINREVAIR [Suspect]
     Active Substance: SOTATERCEPT-CSRK
  3. WINREVAIR [Suspect]
     Active Substance: SOTATERCEPT-CSRK
  4. WINREVAIR [Suspect]
     Active Substance: SOTATERCEPT-CSRK
  5. VELETRI [Concomitant]
     Active Substance: EPOPROSTENOL
     Route: 042
  6. SPIRONOLACTONE [Concomitant]
     Active Substance: SPIRONOLACTONE
  7. TORSEMIDE [Concomitant]
     Active Substance: TORSEMIDE
  8. ADEMPAS [Concomitant]
     Active Substance: RIOCIGUAT
  9. VITAMIN D3 [Concomitant]
     Active Substance: CHOLECALCIFEROL
  10. EPA [Concomitant]
  11. Efavirenz-emtricitabine-tenofovir [Concomitant]
  12. IRON [Concomitant]
     Active Substance: IRON
  13. LISINOPRIL [Concomitant]
     Active Substance: LISINOPRIL
  14. PROTONIX [Concomitant]
     Active Substance: PANTOPRAZOLE SODIUM
  15. POTASSIUM [Concomitant]
     Active Substance: POTASSIUM
  16. AMBRISENTAN [Concomitant]
     Active Substance: AMBRISENTAN

REACTIONS (1)
  - Pericardial effusion [Recovering/Resolving]
